FAERS Safety Report 7769383-9 (Version None)
Quarter: 2011Q3

REPORT INFORMATION
  Report Type: 
  Country: None (occurrence: None)
  Receive Date: 20110922
  Receipt Date: 20110720
  Transmission Date: 20111222
  Serious: No
  Sender: FDA-Public Use
  Company Number: US-ASTRAZENECA-2011SE43901

PATIENT
  Age: 66 Year
  Sex: Female

DRUGS (9)
  1. INSULIN [Concomitant]
  2. MECLIZINE [Concomitant]
  3. GLUCOPHAGE [Concomitant]
  4. OSTEOBIFLEX [Concomitant]
  5. HYDROCORTISON CREAM [Concomitant]
     Indication: SYSTEMIC MYCOSIS
  6. SEROQUEL [Suspect]
     Route: 048
  7. MULTI-VITAMINS [Concomitant]
  8. KETOCONAZOLE [Concomitant]
     Indication: SYSTEMIC MYCOSIS
  9. ECONAZOLE NITRATE [Concomitant]
     Indication: SYSTEMIC MYCOSIS

REACTIONS (1)
  - FUNGAL INFECTION [None]
